FAERS Safety Report 23788781 (Version 1)
Quarter: 2024Q2

REPORT INFORMATION
  Report Type: Spontaneous
  Country: US (occurrence: US)
  Receive Date: 20240426
  Receipt Date: 20240426
  Transmission Date: 20240715
  Serious: Yes (Other)
  Sender: FDA-Public Use
  Company Number: US-SA-SAC20240425000749

PATIENT
  Sex: Female

DRUGS (1)
  1. DUPIXENT [Suspect]
     Active Substance: DUPILUMAB
     Indication: Dermatitis atopic
     Dosage: 300MG QOW
     Route: 058

REACTIONS (9)
  - Rheumatoid arthritis [Not Recovered/Not Resolved]
  - Undifferentiated connective tissue disease [Unknown]
  - Fibromyalgia [Unknown]
  - Chronic fatigue syndrome [Unknown]
  - Pain [Unknown]
  - Neurodermatitis [Unknown]
  - Pruritus [Unknown]
  - Skin exfoliation [Unknown]
  - Erythema [Unknown]
